FAERS Safety Report 5239711-7 (Version None)
Quarter: 2007Q1

REPORT INFORMATION
  Report Type: 
  Country: None (occurrence: None)
  Receive Date: 20070214
  Receipt Date: 20070214
  Transmission Date: 20070707
  Serious: Yes (Hospitalization)
  Sender: FDA-Public Use
  Company Number: None

PATIENT
  Sex: Male

DRUGS (4)
  1. GLIPIZIDE [Suspect]
     Indication: DIABETES MELLITUS
     Dosage: 5 MG DAILY PO
     Route: 048
     Dates: start: 20060907, end: 20061202
  2. LISINOPRIL [Concomitant]
  3. FUROSEMIDE [Concomitant]
  4. PROPRANOLOL [Concomitant]

REACTIONS (1)
  - BLOOD GLUCOSE DECREASED [None]
